FAERS Safety Report 21376925 (Version 2)
Quarter: 2022Q4

REPORT INFORMATION
  Report Type: Spontaneous
  Country: CH (occurrence: CH)
  Receive Date: 20220926
  Receipt Date: 20221010
  Transmission Date: 20230113
  Serious: Yes (Hospitalization)
  Sender: FDA-Public Use
  Company Number: CH-GE HEALTHCARE-2022CSU006899

PATIENT
  Age: 59 Year
  Sex: Female
  Weight: 68 kg

DRUGS (3)
  1. CLARISCAN [Suspect]
     Active Substance: GADOTERATE MEGLUMINE
     Indication: Diagnostic procedure
     Dosage: 15 ML, SINGLE
     Route: 065
     Dates: start: 20220922, end: 20220922
  2. CLARISCAN [Suspect]
     Active Substance: GADOTERATE MEGLUMINE
     Indication: Inflammation
  3. CLARISCAN [Suspect]
     Active Substance: GADOTERATE MEGLUMINE
     Indication: Neoplasm

REACTIONS (1)
  - Hypersensitivity [Unknown]

NARRATIVE: CASE EVENT DATE: 20220922
